FAERS Safety Report 10311530 (Version 2)
Quarter: 2014Q3

REPORT INFORMATION
  Report Type: Spontaneous
  Country: US (occurrence: US)
  Receive Date: 20140717
  Receipt Date: 20140805
  Transmission Date: 20150326
  Serious: Yes (Other)
  Sender: FDA-Public Use
  Company Number: US-GLAXOSMITHKLINE-A1080891A

PATIENT
  Age: 69 Year
  Sex: Male

DRUGS (14)
  1. ALBUTEROL NEBULIZER [Concomitant]
     Active Substance: ALBUTEROL
  2. BENAZEPRIL [Concomitant]
     Active Substance: BENAZEPRIL\BENAZEPRIL HYDROCHLORIDE
  3. EXPECTORANT [Concomitant]
     Active Substance: GUAIFENESIN
  4. VENTOLIN [Suspect]
     Active Substance: ALBUTEROL SULFATE
     Indication: PRODUCT USED FOR UNKNOWN INDICATION
     Route: 065
     Dates: start: 2004
  5. ALBUTEROL. [Suspect]
     Active Substance: ALBUTEROL
     Indication: PULMONARY FUNCTION TEST DECREASED
     Dosage: 1PUFF AS REQUIRED
     Route: 055
     Dates: start: 2004
  6. FENOFIBRATE. [Concomitant]
     Active Substance: FENOFIBRATE
  7. MINT OIL [Concomitant]
  8. GLYCERYL TRINITRATE [Concomitant]
     Active Substance: NITROGLYCERIN
  9. NITROGLYCERIN. [Concomitant]
     Active Substance: NITROGLYCERIN
  10. PLAVIX [Concomitant]
     Active Substance: CLOPIDOGREL BISULFATE
  11. PREDNISONE. [Concomitant]
     Active Substance: PREDNISONE
  12. GUAIFENESIN. [Concomitant]
     Active Substance: GUAIFENESIN
  13. PAIN KILLERS [Concomitant]
     Active Substance: UNSPECIFIED INGREDIENT
  14. CARTIA XT [Concomitant]
     Active Substance: DILTIAZEM HYDROCHLORIDE

REACTIONS (9)
  - Poor quality sleep [Unknown]
  - Exposure via inhalation [Unknown]
  - Cardiac monitoring [Recovered/Resolved]
  - Angina pectoris [Unknown]
  - Lung disorder [Unknown]
  - Heart rate increased [Unknown]
  - Stent placement [Unknown]
  - Sputum increased [Unknown]
  - Cough [Unknown]

NARRATIVE: CASE EVENT DATE: 2004
